FAERS Safety Report 16335458 (Version 1)
Quarter: 2019Q2

REPORT INFORMATION
  Report Type: Spontaneous
  Country: US (occurrence: US)
  Receive Date: 20190521
  Receipt Date: 20190521
  Transmission Date: 20190711
  Serious: Yes (Other)
  Sender: FDA-Public Use
  Company Number: US-ROCHE-2320268

PATIENT

DRUGS (19)
  1. PROVENTIL [Concomitant]
     Active Substance: ALBUTEROL
     Indication: DYSPNOEA
     Dosage: USE 1 VIAL IN NEBULIZER EVERY 6 HOURS AS NEEDED
     Route: 055
  2. MEVACOR [Concomitant]
     Active Substance: LOVASTATIN
     Dosage: IN THE EVENING WITH SUPPER
     Route: 048
  3. CALCIUM 500+D [Concomitant]
     Active Substance: CALCIUM\VITAMIN D
     Route: 048
  4. CODEINE [Concomitant]
     Active Substance: CODEINE
  5. DOLOPHINE [Concomitant]
     Active Substance: METHADONE HYDROCHLORIDE
     Route: 048
  6. MYCOSTATIN [Concomitant]
     Active Substance: NYSTATIN
     Dosage: APPLY CREAM TOPICALLY TO AFFECTED AREA
     Route: 061
     Dates: start: 20180504
  7. FLEXERIL [Concomitant]
     Active Substance: CYCLOBENZAPRINE HYDROCHLORIDE
     Route: 065
     Dates: start: 20070725
  8. ATROVENT [Concomitant]
     Active Substance: IPRATROPIUM BROMIDE
     Indication: DYSPNOEA
     Route: 055
     Dates: start: 20181002
  9. DUONEB [Concomitant]
     Active Substance: ALBUTEROL SULFATE\IPRATROPIUM BROMIDE
     Indication: DYSPNOEA
     Dosage: 3 ML BY EVERY 12 HOURS AS NEEDED
     Route: 055
     Dates: start: 20160822
  10. DUONEB [Concomitant]
     Active Substance: ALBUTEROL SULFATE\IPRATROPIUM BROMIDE
     Indication: COUGH
  11. PROAIR HFA [Concomitant]
     Active Substance: ALBUTEROL SULFATE
     Indication: DYSPNOEA
     Dosage: INHALE 2 PUFFS BY MOUTHEVERY 6 HOURS AS NEEDED
     Route: 055
     Dates: start: 20170203
  12. EMLA [LIDOCAINE;PRILOCAINE] [Concomitant]
     Dosage: APPLY TO AFFECTED 30-45 MINUTES PRIOR TO ACCESS OF IP
     Route: 065
     Dates: start: 20160909
  13. ASPIRIN [ACETYLSALICYLIC ACID] [Concomitant]
     Active Substance: ASPIRIN
     Route: 048
  14. VALIUM [Suspect]
     Active Substance: DIAZEPAM
     Indication: PRODUCT USED FOR UNKNOWN INDICATION
     Route: 065
  15. IBRANCE [Concomitant]
     Active Substance: PALBOCICLIB
     Indication: BREAST CANCER FEMALE
     Dosage: FOR 21 DAY CYCLE, THEN OFF 7 DAY IN 28 CYCLE, THEN REPEAT
     Route: 048
     Dates: start: 20190409
  16. AUGMENTINE [AMOXICILLIN;CLAVULANIC ACID] [Concomitant]
     Active Substance: AMOXICILLIN\CLAVULANIC ACID
     Dosage: EVERY 12 HOURS TO 10 DAYS BEGIN AT FIRST SIGN OF COLORED SPUTUM
     Route: 048
     Dates: start: 20190325
  17. VENTOLIN [Concomitant]
     Active Substance: ALBUTEROL SULFATE
     Indication: DYSPNOEA
     Dosage: USE 1 VIAL IN NEBULIZER FOR EVERY 6 HOURS AS NEEDED
     Route: 055
     Dates: start: 20181002
  18. DUONEB [Concomitant]
     Active Substance: ALBUTEROL SULFATE\IPRATROPIUM BROMIDE
     Indication: WHEEZING
  19. FISH OIL [Concomitant]
     Active Substance: FISH OIL
     Route: 048
     Dates: start: 20111013

REACTIONS (2)
  - Drug hypersensitivity [Unknown]
  - Anaphylactic reaction [Unknown]
